FAERS Safety Report 17775938 (Version 1)
Quarter: 2020Q2

REPORT INFORMATION
  Report Type: Spontaneous
  Country: US (occurrence: US)
  Receive Date: 20200513
  Receipt Date: 20200513
  Transmission Date: 20200714
  Serious: Yes (Hospitalization)
  Sender: FDA-Public Use
  Company Number: None

PATIENT
  Sex: Male

DRUGS (1)
  1. ABIRATERONE ACETATE 250MG APOTEX [Suspect]
     Active Substance: ABIRATERONE ACETATE
     Indication: ILL-DEFINED DISORDER
     Route: 048
     Dates: start: 20200420, end: 20200430

REACTIONS (4)
  - Liver disorder [None]
  - Renal disorder [None]
  - Blood sodium decreased [None]
  - Cardiac disorder [None]
